FAERS Safety Report 15557525 (Version 1)
Quarter: 2018Q4

REPORT INFORMATION
  Report Type: Spontaneous
  Country: US (occurrence: US)
  Receive Date: 20181027
  Receipt Date: 20181027
  Transmission Date: 20190205
  Serious: Yes (Hospitalization)
  Sender: FDA-Public Use
  Company Number: US-ROCHE-2204702

PATIENT

DRUGS (1)
  1. OCREVUS [Suspect]
     Active Substance: OCRELIZUMAB
     Indication: PRODUCT USED FOR UNKNOWN INDICATION
     Route: 042

REACTIONS (6)
  - Viral infection [Unknown]
  - Cellulitis [Unknown]
  - Staphylococcal infection [Unknown]
  - Cardiac disorder [Unknown]
  - Sepsis [Unknown]
  - Escherichia test positive [Unknown]
